FAERS Safety Report 9381806 (Version 1)
Quarter: 2013Q3

REPORT INFORMATION
  Report Type: Report from Study
  Country: US (occurrence: US)
  Receive Date: 20130703
  Receipt Date: 20130703
  Transmission Date: 20140515
  Serious: Yes (Hospitalization)
  Sender: FDA-Public Use
  Company Number: US-JNJFOC-20130618816

PATIENT
  Age: 10 Year
  Sex: Male
  Weight: 23.4 kg

DRUGS (6)
  1. REMICADE [Suspect]
     Indication: CROHN^S DISEASE
     Route: 042
     Dates: start: 20121231
  2. REMICADE [Suspect]
     Indication: CROHN^S DISEASE
     Route: 042
     Dates: start: 20110708
  3. 5-ASA [Concomitant]
     Route: 048
  4. KEFLEX [Concomitant]
     Route: 065
  5. CLARITHROMYCIN [Concomitant]
     Route: 065
  6. CLINDAMYCIN [Concomitant]
     Route: 065

REACTIONS (2)
  - Crohn^s disease [Recovered/Resolved]
  - Abscess [Recovered/Resolved]
